FAERS Safety Report 24328973 (Version 2)
Quarter: 2024Q3

REPORT INFORMATION
  Report Type: Report from Study
  Country: IT (occurrence: IT)
  Receive Date: 20240917
  Receipt Date: 20240923
  Transmission Date: 20241017
  Serious: No
  Sender: NOVARTIS
  Company Number: IT-002147023-NVSC2024IT182209

PATIENT
  Age: 16 Month
  Sex: Male
  Weight: 6.99 kg

DRUGS (7)
  1. MEKINIST [Suspect]
     Active Substance: TRAMETINIB DIMETHYL SULFOXIDE
     Indication: Hypertrophic cardiomyopathy
     Dosage: 3 ML (0.021 MG/KG), QD, (CONCENTRATION 5MG/100 ML)
     Route: 048
     Dates: start: 20240715
  2. MEKINIST [Suspect]
     Active Substance: TRAMETINIB DIMETHYL SULFOXIDE
     Indication: Pleural effusion
     Dosage: 3 ML (0.021 MG/KG), QD, DATE DOSE LAST TAKEN PRIOR TO AE (CONCENTRATION 5MG/100 ML)
     Route: 048
     Dates: start: 20240826
  3. MEKINIST [Suspect]
     Active Substance: TRAMETINIB DIMETHYL SULFOXIDE
     Indication: Congenital lymphatic dysplasia
     Dosage: 0.019 MG/KG, QD, (CONCENTRATION 5MG/100 ML)
     Route: 048
     Dates: start: 20240826
  4. MEKINIST [Suspect]
     Active Substance: TRAMETINIB DIMETHYL SULFOXIDE
     Indication: Noonan syndrome
  5. PROPRANOLOL [Concomitant]
     Active Substance: PROPRANOLOL HYDROCHLORIDE
     Indication: Product used for unknown indication
     Dosage: UNK
     Route: 065
  6. FUROSEMIDE [Concomitant]
     Active Substance: FUROSEMIDE
     Indication: Product used for unknown indication
     Dosage: UNK
     Route: 065
  7. CANRENOATE POTASSIUM [Concomitant]
     Active Substance: CANRENOATE POTASSIUM
     Indication: Product used for unknown indication
     Dosage: UNK
     Route: 065

REACTIONS (1)
  - Lung consolidation [Not Recovered/Not Resolved]

NARRATIVE: CASE EVENT DATE: 20240826
